FAERS Safety Report 25963063 (Version 2)
Quarter: 2025Q4

REPORT INFORMATION
  Report Type: Spontaneous
  Country: US (occurrence: US)
  Receive Date: 20251027
  Receipt Date: 20251222
  Transmission Date: 20260118
  Serious: No
  Sender: MERCK SHARP & DOHME LLC
  Company Number: US-009507513-2342476

PATIENT
  Sex: Female
  Weight: 97.522 kg

DRUGS (13)
  1. WINREVAIR [Suspect]
     Active Substance: SOTATERCEPT-CSRK
  2. WINREVAIR [Suspect]
     Active Substance: SOTATERCEPT-CSRK
  3. WINREVAIR [Suspect]
     Active Substance: SOTATERCEPT-CSRK
  4. WINREVAIR [Suspect]
     Active Substance: SOTATERCEPT-CSRK
  5. TREPROSTINIL [Suspect]
     Active Substance: TREPROSTINIL
     Indication: Pulmonary arterial hypertension
     Dosage: 30 NG/KG/MIN, CONTINUOUS
     Route: 042
  6. TREPROSTINIL [Suspect]
     Active Substance: TREPROSTINIL
     Indication: Pulmonary arterial hypertension
     Dosage: 30 NG/KG/MIN, CONTINUOUS
     Route: 042
  7. STERILE DILUENT FOR TREPROSTINIL [Concomitant]
     Active Substance: WATER
  8. SODIUM CHLORIDE [Concomitant]
     Active Substance: SODIUM CHLORIDE
  9. OPSUMIT [Concomitant]
     Active Substance: MACITENTAN
  10. SILDENAFIL CITRATE [Concomitant]
     Active Substance: SILDENAFIL CITRATE
  11. TORSEMIDE [Concomitant]
     Active Substance: TORSEMIDE
  12. ASPIRIN [Concomitant]
     Active Substance: ASPIRIN
  13. OZEMPIC [Concomitant]
     Active Substance: SEMAGLUTIDE

REACTIONS (2)
  - Full blood count abnormal [Unknown]
  - Haemoglobin increased [Recovered/Resolved]
